FAERS Safety Report 9887980 (Version 1)
Quarter: 2014Q1

REPORT INFORMATION
  Report Type: Report from Study
  Country: CA (occurrence: CA)
  Receive Date: 20140211
  Receipt Date: 20140211
  Transmission Date: 20141002
  Serious: Yes (Other)
  Sender: FDA-Public Use
  Company Number: CA-SANOFI-AVENTIS-2013SA030677

PATIENT
  Age: 58 Year
  Sex: Female

DRUGS (12)
  1. TERIFLUNOMIDE [Suspect]
     Indication: MULTIPLE SCLEROSIS
     Dosage: DOSE:1 UNIT(S)
     Route: 048
     Dates: start: 20110309
  2. PREVACID [Concomitant]
     Route: 065
     Dates: start: 200810
  3. VITAMIN D [Concomitant]
     Route: 065
     Dates: start: 200811
  4. APO-DILTIAZ [Concomitant]
     Route: 065
     Dates: start: 20090709
  5. APO-TRIAZIDE [Concomitant]
     Route: 065
     Dates: start: 20100315
  6. VENLAFAXINE [Concomitant]
     Route: 048
     Dates: start: 201103
  7. ATORVASTATIN [Concomitant]
     Route: 065
     Dates: start: 20110405
  8. OMEGA-3 [Concomitant]
     Dosage: DOSE:1 UNIT(S)
     Route: 048
     Dates: start: 20110504, end: 201301
  9. NAPROXEN [Concomitant]
     Route: 048
     Dates: start: 20120301
  10. TRIAMTEREN [Concomitant]
     Route: 048
     Dates: start: 201111
  11. ROSUVASTATIN [Concomitant]
     Route: 048
     Dates: start: 201111
  12. ROPINIROLE [Concomitant]
     Route: 048
     Dates: start: 20121027, end: 20130222

REACTIONS (1)
  - Abdominal wall abscess [Recovered/Resolved]
